FAERS Safety Report 6570534-2 (Version None)
Quarter: 2010Q1

REPORT INFORMATION
  Report Type: 
  Country: None (occurrence: None)
  Receive Date: 20100204
  Receipt Date: 20100126
  Transmission Date: 20100710
  Serious: Yes (Hospitalization)
  Sender: FDA-Public Use
  Company Number: JP-JNJFOC-20100110160

PATIENT
  Age: 9 Year
  Sex: Male

DRUGS (8)
  1. CRAVIT [Suspect]
     Indication: PYREXIA
     Dosage: 200 MG, 3 IN 1 DAY
     Route: 048
  2. MUCOSOLVAN [Suspect]
     Indication: DRUG USE FOR UNKNOWN INDICATION
     Route: 048
  3. CALONAL [Suspect]
     Indication: DRUG USE FOR UNKNOWN INDICATION
     Dosage: 10 TABLETS OF 300 MG FOR 3 DAYS AS NECESSARY
     Route: 048
  4. SALICYLAMIDE/ACETAMIN/CAFFEINE/PROMETHAZINE [Suspect]
     Indication: DRUG USE FOR UNKNOWN INDICATION
     Route: 048
  5. NAUZELIN [Suspect]
     Indication: DRUG USE FOR UNKNOWN INDICATION
     Route: 048
  6. FLOMOX [Suspect]
     Indication: INFECTION PARASITIC
     Route: 048
  7. BIOFERMIN R [Concomitant]
     Route: 065
  8. ALL OTHER THERAPEUTIC PRODUCTS [Concomitant]
     Route: 065

REACTIONS (1)
  - RENAL DISORDER [None]
